FAERS Safety Report 5390509-9 (Version None)
Quarter: 2007Q3

REPORT INFORMATION
  Report Type: 
  Country: None (occurrence: None)
  Receive Date: 20070718
  Receipt Date: 20070521
  Transmission Date: 20080115
  Serious: No
  Sender: FDA-Public Use
  Company Number: US-KINGPHARMUSA00001-K200700619

PATIENT

DRUGS (3)
  1. LEVOXYL [Suspect]
     Indication: POST PROCEDURAL HYPOTHYROIDISM
     Dosage: 75 MCG, QD
     Route: 048
     Dates: start: 20030101
  2. TOPROL-XL [Concomitant]
     Indication: HEART RATE
     Dosage: UNK, QD
     Route: 048
     Dates: start: 19980101
  3. ADVAIR DISKUS 100/50 [Concomitant]

REACTIONS (4)
  - ALOPECIA [None]
  - BLOOD THYROID STIMULATING HORMONE INCREASED [None]
  - DRUG INEFFECTIVE [None]
  - FATIGUE [None]
